FAERS Safety Report 11511728 (Version 1)
Quarter: 2015Q3

REPORT INFORMATION
  Report Type: Spontaneous
  Country: ES (occurrence: ES)
  Receive Date: 20150915
  Receipt Date: 20150915
  Transmission Date: 20151125
  Serious: Yes (Other)
  Sender: FDA-Public Use
  Company Number: ES-ALLERGAN-1518304US

PATIENT
  Age: 69 Year
  Sex: Male
  Weight: 37.19 kg

DRUGS (3)
  1. GANFORT [Suspect]
     Active Substance: BIMATOPROST\TIMOLOL
     Indication: PRODUCT USED FOR UNKNOWN INDICATION
     Dosage: 2 GTT, QD
     Route: 047
     Dates: start: 20150107
  2. VALSARTAN/HIDROCLOROTIAZIDA CINFA 80 MG/12,5 MG COMPRIMIDOS RECUBIERTO [Concomitant]
     Indication: HYPERTENSION
     Dosage: 1 DF, QD
  3. ALOPURINOL PENSA 100 MG COMPRIMIDOS EFG, 100 COMPRIMIDOS [Concomitant]
     Indication: HYPERURICAEMIA
     Dosage: 1 DF, QD

REACTIONS (1)
  - Anosmia [Not Recovered/Not Resolved]

NARRATIVE: CASE EVENT DATE: 201502
